FAERS Safety Report 4622639-0 (Version None)
Quarter: 2005Q1

REPORT INFORMATION
  Report Type: 
  Country: None (occurrence: None)
  Receive Date: 20050328
  Receipt Date: 20050328
  Transmission Date: 20050727
  Serious: No
  Sender: FDA-Public Use
  Company Number: None

PATIENT
  Sex: Male

DRUGS (2)
  1. ZOLOFT [Suspect]
     Dosage: PO 25 MG DAILY
     Route: 048
  2. ABILIFY [Suspect]
     Indication: BIPOLAR DISORDER
     Dosage: 15 MG BID

REACTIONS (4)
  - CHEST DISCOMFORT [None]
  - DYSPNOEA [None]
  - NAUSEA [None]
  - VOMITING [None]
